FAERS Safety Report 4782829-3 (Version None)
Quarter: 2005Q3

REPORT INFORMATION
  Report Type: 
  Country: None (occurrence: None)
  Receive Date: 20050914
  Receipt Date: 20050603
  Transmission Date: 20060218
  Serious: Yes (Death, Hospitalization, Other)
  Sender: FDA-Public Use
  Company Number: 163-20785-05060104

PATIENT
  Age: 54 Year
  Sex: Male

DRUGS (8)
  1. THALOMID [Suspect]
     Indication: CHRONIC LYMPHOCYTIC LEUKAEMIA
     Dosage: 200 MG, DAILY, ORAL
     Route: 048
     Dates: start: 20050607, end: 20050601
  2. THALOMID [Suspect]
     Indication: CHRONIC LYMPHOCYTIC LEUKAEMIA
     Dosage: 200 MG, DAILY, ORAL
     Route: 048
     Dates: start: 20050524, end: 20050602
  3. FLUDARABINE PHOSPHATE [Suspect]
     Indication: CHRONIC LYMPHOCYTIC LEUKAEMIA
     Dosage: 25MG/M2, DAILY FOR 5 DAYS EVERY 28 DAYS, UNKNOWN
     Dates: start: 20050531, end: 20050608
  4. ACYCLOVIR [Concomitant]
  5. BACTRIM [Concomitant]
  6. COLACE (DOCUSATE SODIUM) [Concomitant]
  7. SENOKOT [Concomitant]
  8. COUMADIN [Concomitant]

REACTIONS (5)
  - DEATH [None]
  - DYSPNOEA [None]
  - HYPOTENSION [None]
  - HYPOXIA [None]
  - PLEURAL EFFUSION [None]
